FAERS Safety Report 5108792-3 (Version None)
Quarter: 2006Q3

REPORT INFORMATION
  Report Type: 
  Country: None (occurrence: None)
  Receive Date: 20060918
  Receipt Date: 20060905
  Transmission Date: 20061208
  Serious: Yes (Hospitalization)
  Sender: FDA-Public Use
  Company Number: 2006091277

PATIENT
  Age: 44 Year
  Sex: Female
  Weight: 65 kg

DRUGS (4)
  1. SUTENT [Suspect]
     Indication: METASTATIC RENAL CELL CARCINOMA
     Dosage: 50 MG (50 MG, FREQUENCY: DAILY INTERVAL:  ONCE), ORAL
     Route: 048
     Dates: start: 20060630, end: 20060723
  2. INSUMAN (INSULIN HUMAN INJECTION, ISOPHANE , INSULIN ZINC PROTAMINE IN [Concomitant]
  3. LANTUS [Concomitant]
  4. DURAGESIC-100 [Concomitant]

REACTIONS (7)
  - BILIRUBIN CONJUGATED INCREASED [None]
  - DEHYDRATION [None]
  - HAEMOLYTIC ANAEMIA [None]
  - HAPTOGLOBIN DECREASED [None]
  - LEUKOPENIA [None]
  - REFLUX GASTRITIS [None]
  - THROMBOCYTOPENIA [None]
